FAERS Safety Report 8101206-0 (Version None)
Quarter: 2012Q1

REPORT INFORMATION
  Report Type: 
  Country: None (occurrence: None)
  Receive Date: 20120129
  Receipt Date: 20111031
  Transmission Date: 20120608
  Serious: No
  Sender: FDA-Public Use
  Company Number: US-ABBOTT-11P-163-0864095-00

PATIENT
  Age: 50 Year
  Sex: Female

DRUGS (5)
  1. HUMIRA [Suspect]
     Indication: COLITIS ULCERATIVE
     Dates: start: 20110802
  2. INDERAL [Concomitant]
     Indication: MIGRAINE
     Route: 048
  3. LOTREL [Concomitant]
     Indication: BLOOD PRESSURE INCREASED
     Dosage: 10/40MG DAILY
     Dates: end: 20111017
  4. LOTREL [Concomitant]
     Dosage: 10/20MG DAILY
     Dates: start: 20111017
  5. LIALDA [Concomitant]
     Indication: COLITIS ULCERATIVE
     Route: 048

REACTIONS (8)
  - VOMITING [None]
  - MOOD SWINGS [None]
  - HEADACHE [None]
  - HYPOTENSION [None]
  - CRYING [None]
  - PAIN [None]
  - WEIGHT INCREASED [None]
  - BACK PAIN [None]
